FAERS Safety Report 20534138 (Version 1)
Quarter: 2022Q1

REPORT INFORMATION
  Report Type: Other
  Country: US (occurrence: None)
  Receive Date: 20220301
  Receipt Date: 20220301
  Transmission Date: 20220423
  Serious: Yes (Other)
  Sender: FDA-Public Use
  Company Number: US-ROCHE-3031246

PATIENT
  Sex: Female

DRUGS (12)
  1. OCREVUS [Suspect]
     Active Substance: OCRELIZUMAB
     Indication: Relapsing multiple sclerosis
     Dosage: 300MG/10ML INTRAVENOUS SOLUTION ONE DOSE EVERY 6 MONTHS
     Route: 042
  2. PREGABALIN [Concomitant]
     Active Substance: PREGABALIN
  3. PREDNISONE [Concomitant]
     Active Substance: PREDNISONE
  4. ERGOCALCIFEROL [Concomitant]
     Active Substance: ERGOCALCIFEROL
  5. ACETAMINOPHEN\HYDROCODONE [Concomitant]
     Active Substance: ACETAMINOPHEN\HYDROCODONE
  6. TIZANIDINE [Concomitant]
     Active Substance: TIZANIDINE
  7. ZOLPIDEM [Concomitant]
     Active Substance: ZOLPIDEM TARTRATE
  8. BACLOFEN [Concomitant]
     Active Substance: BACLOFEN
  9. PREGABALIN [Concomitant]
     Active Substance: PREGABALIN
  10. FLONASE [Concomitant]
     Active Substance: FLUTICASONE PROPIONATE
  11. AMPYRA [Concomitant]
     Active Substance: DALFAMPRIDINE
  12. MYRBETRIQ [Concomitant]
     Active Substance: MIRABEGRON

REACTIONS (7)
  - COVID-19 [Unknown]
  - Anxiety [Unknown]
  - Depression [Unknown]
  - Vitamin D deficiency [Unknown]
  - Insomnia [Unknown]
  - Urinary incontinence [Unknown]
  - Neurogenic bladder [Unknown]
